FAERS Safety Report 8428534-3 (Version None)
Quarter: 2012Q2

REPORT INFORMATION
  Report Type: 
  Country: None (occurrence: None)
  Receive Date: 20120612
  Receipt Date: 20120531
  Transmission Date: 20120825
  Serious: Yes (Hospitalization)
  Sender: FDA-Public Use
  Company Number: CA-BRISTOL-MYERS SQUIBB COMPANY-16569360

PATIENT
  Age: 52 Year
  Sex: Female

DRUGS (15)
  1. FLUCONAZOLE [Concomitant]
  2. ALENDRONATE SODIUM [Concomitant]
     Dosage: 1 DF : 70MG + 140MG
  3. SENNA-MINT WAF [Concomitant]
     Dosage: 1 DF : 1-2TABS, 8.6MG
  4. SINGULAIR [Concomitant]
  5. ALVESCO [Concomitant]
     Dosage: 1 DF:2 PUFFS,200MCG/PUFF
  6. LANSOPRAZOLE [Concomitant]
  7. ORENCIA [Suspect]
     Indication: RHEUMATOID ARTHRITIS
     Dosage: IV,LAST DOSE:30APR2012,15MAY12.NO OF INF:3
     Route: 042
     Dates: start: 20120417
  8. VENTOLIN [Concomitant]
     Dosage: 1 DF :2PUFFS BID,100MCG/PUFF
  9. ATIVAN [Concomitant]
     Dosage: 1 DF : 1/2-1 TAB HS,1MG
  10. SYMBICORT [Concomitant]
     Dosage: 1 DF:3 PUFFS,200MCG/PUFF
  11. LITHIUM [Concomitant]
  12. ADVAIR DISKUS 100/50 [Concomitant]
  13. DOMPERIDONE [Concomitant]
  14. COLACE [Concomitant]
     Dosage: 1 DF: 1-2 CAPS,100MG
  15. PREDNISONE [Concomitant]
     Dosage: DECREASING DOSE

REACTIONS (8)
  - BRONCHIOLITIS [None]
  - COUGH [None]
  - HEADACHE [None]
  - OROPHARYNGEAL PAIN [None]
  - VOMITING [None]
  - DYSPNOEA [None]
  - DIARRHOEA [None]
  - NAUSEA [None]
